FAERS Safety Report 5809598-X (Version None)
Quarter: 2008Q3

REPORT INFORMATION
  Report Type: 
  Country: None (occurrence: None)
  Receive Date: 20080715
  Receipt Date: 20080516
  Transmission Date: 20090109
  Serious: Yes (Hospitalization)
  Sender: FDA-Public Use
  Company Number: BE-TEVA-164686ISR

PATIENT
  Sex: Female
  Weight: 75 kg

DRUGS (13)
  1. FLUOROURACIL [Suspect]
     Route: 042
     Dates: start: 20071105
  2. FLUOROURACIL [Suspect]
     Route: 042
     Dates: start: 20071105
  3. CALCIUM LEVOFOLINATE [Suspect]
     Route: 042
     Dates: start: 20071105
  4. IRINOTECAN HCL [Suspect]
     Route: 042
     Dates: start: 20071105
  5. FENTANYL [Concomitant]
     Dosage: 25 MICROGRAM/72H
  6. OMEPRAZOLE [Concomitant]
  7. DOMPERIDONE [Concomitant]
     Dosage: 2 CAPS/DAY
  8. INSULIN HUMAN [Concomitant]
     Dosage: 24E, 8E, 12E
  9. ISOPHANE INSULIN [Concomitant]
     Dosage: 24E
  10. MELOXICAM [Concomitant]
  11. SIMVASTATIN [Concomitant]
  12. CYCLO-PROGYNOVA [Concomitant]
  13. LITHIUM CARBONATE [Concomitant]
     Dosage: 2 TABS/DAY

REACTIONS (3)
  - DIABETES MELLITUS INADEQUATE CONTROL [None]
  - PYREXIA [None]
  - URINARY TRACT INFECTION [None]
